FAERS Safety Report 25117204 (Version 1)
Quarter: 2025Q1

REPORT INFORMATION
  Report Type: Spontaneous
  Country: US (occurrence: US)
  Receive Date: 20250325
  Receipt Date: 20250325
  Transmission Date: 20250408
  Serious: Yes (Hospitalization)
  Sender: ROCHE
  Company Number: US-ROCHE-10000233260

PATIENT
  Sex: Male

DRUGS (4)
  1. OBINUTUZUMAB [Suspect]
     Active Substance: OBINUTUZUMAB
     Indication: Diffuse large B-cell lymphoma
     Route: 042
  2. COLUMVI [Suspect]
     Active Substance: GLOFITAMAB-GXBM
     Indication: Diffuse large B-cell lymphoma
     Route: 042
  3. IMBRUVICA [Concomitant]
     Active Substance: IBRUTINIB
  4. DEXAMETHASONE [Concomitant]
     Active Substance: DEXAMETHASONE
     Route: 042

REACTIONS (4)
  - Infection [Unknown]
  - Cytokine release syndrome [Recovered/Resolved]
  - Neutropenia [Unknown]
  - Off label use [Unknown]
